FAERS Safety Report 16570222 (Version 2)
Quarter: 2019Q3

REPORT INFORMATION
  Report Type: Report from Study
  Country: US (occurrence: US)
  Receive Date: 20190715
  Receipt Date: 20190916
  Transmission Date: 20191004
  Serious: Yes (Other)
  Sender: FDA-Public Use
  Company Number: US-EMD SERONO-9103261

PATIENT
  Age: 35 Year
  Sex: Female

DRUGS (3)
  1. REBIF [Suspect]
     Active Substance: INTERFERON BETA-1A
     Route: 058
  2. REBIF [Suspect]
     Active Substance: INTERFERON BETA-1A
     Indication: MULTIPLE SCLEROSIS
     Dosage: PREFILLED SYRINGE
     Route: 058
     Dates: start: 20180106
  3. REBIF [Suspect]
     Active Substance: INTERFERON BETA-1A
     Dosage: PREFILLED SYRINGE
     Route: 058

REACTIONS (6)
  - Gallbladder disorder [Not Recovered/Not Resolved]
  - Injection site bruising [Unknown]
  - Paraesthesia [Recovered/Resolved]
  - Malaise [Unknown]
  - Temperature intolerance [Unknown]
  - Anal incontinence [Unknown]

NARRATIVE: CASE EVENT DATE: 201907
